FAERS Safety Report 6602514-2 (Version None)
Quarter: 2010Q1

REPORT INFORMATION
  Report Type: 
  Country: None (occurrence: None)
  Receive Date: 20100217
  Receipt Date: 20100128
  Transmission Date: 20100710
  Serious: Yes (Hospitalization)
  Sender: FDA-Public Use
  Company Number: 2010US000230

PATIENT
  Age: 48 Year
  Sex: Male

DRUGS (6)
  1. ALEFACEPT (ALEFACEPT) INJECTION [Suspect]
     Indication: RENAL TRANSPLANT
     Dosage: 7.5 MG, TOTAL DOSE IV NOS, 30 MG, OTHER, SUBCUTANEOUS, 15 MG, MONTHLY, SUBCUTANEOUS
     Route: 042
     Dates: start: 20090415, end: 20090415
  2. ALEFACEPT (ALEFACEPT) INJECTION [Suspect]
     Indication: RENAL TRANSPLANT
     Dosage: 7.5 MG, TOTAL DOSE IV NOS, 30 MG, OTHER, SUBCUTANEOUS, 15 MG, MONTHLY, SUBCUTANEOUS
     Route: 042
     Dates: start: 20090418, end: 20090418
  3. ALEFACEPT (ALEFACEPT) INJECTION [Suspect]
     Indication: RENAL TRANSPLANT
     Dosage: 7.5 MG, TOTAL DOSE IV NOS, 30 MG, OTHER, SUBCUTANEOUS, 15 MG, MONTHLY, SUBCUTANEOUS
     Route: 042
     Dates: start: 20090422, end: 20090701
  4. ALEFACEPT (ALEFACEPT) INJECTION [Suspect]
     Indication: RENAL TRANSPLANT
     Dosage: 7.5 MG, TOTAL DOSE IV NOS, 30 MG, OTHER, SUBCUTANEOUS, 15 MG, MONTHLY, SUBCUTANEOUS
     Route: 042
     Dates: start: 20090805, end: 20091001
  5. PROGRAF [Suspect]
     Indication: RENAL TRANSPLANT
     Dosage: ORAL
     Route: 048
     Dates: start: 20090415
  6. PREDNISONE TAB [Suspect]

REACTIONS (1)
  - DIABETIC KETOACIDOSIS [None]
